FAERS Safety Report 18131661 (Version 1)
Quarter: 2020Q3

REPORT INFORMATION
  Report Type: Spontaneous
  Country: US (occurrence: US)
  Receive Date: 20200810
  Receipt Date: 20200810
  Transmission Date: 20201103
  Serious: No
  Sender: FDA-Public Use
  Company Number: US-ELI_LILLY_AND_COMPANY-US202008002786

PATIENT
  Sex: Female

DRUGS (2)
  1. TALTZ [Suspect]
     Active Substance: IXEKIZUMAB
     Indication: GUTTATE PSORIASIS
     Dosage: 80 MG, UNKNOWN
     Route: 065
     Dates: start: 202006
  2. TALTZ [Suspect]
     Active Substance: IXEKIZUMAB
     Indication: GUTTATE PSORIASIS
     Dosage: 80 MG, UNKNOWN
     Route: 065
     Dates: start: 202006

REACTIONS (1)
  - Injection site reaction [Unknown]
